FAERS Safety Report 6195226-3 (Version None)
Quarter: 2009Q2

REPORT INFORMATION
  Report Type: 
  Country: None (occurrence: None)
  Receive Date: 20090519
  Receipt Date: 20090508
  Transmission Date: 20091009
  Serious: Yes (Death, Hospitalization)
  Sender: FDA-Public Use
  Company Number: GR-MERCK-0905GRC00005

PATIENT
  Age: 62 Year

DRUGS (12)
  1. PRIMAXIN [Suspect]
     Indication: POST PROCEDURAL INFECTION
     Route: 042
  2. PRIMAXIN [Suspect]
     Indication: PERITONITIS
     Route: 042
  3. COLISTIN [Concomitant]
     Indication: POST PROCEDURAL INFECTION
     Route: 042
  4. COLISTIN [Concomitant]
     Indication: PERITONITIS
     Route: 042
  5. TIGECYCLINE [Concomitant]
     Indication: POST PROCEDURAL INFECTION
     Route: 042
  6. TIGECYCLINE [Concomitant]
     Indication: PERITONITIS
     Route: 042
  7. COLISTIN [Concomitant]
     Route: 042
  8. COLISTIN [Concomitant]
     Route: 042
  9. LINEZOLID [Concomitant]
     Indication: POST PROCEDURAL INFECTION
     Route: 042
  10. LINEZOLID [Concomitant]
     Indication: PERITONITIS
     Route: 042
  11. LINEZOLID [Concomitant]
     Route: 042
  12. LINEZOLID [Concomitant]
     Route: 042

REACTIONS (1)
  - TREATMENT FAILURE [None]
